FAERS Safety Report 13414282 (Version 2)
Quarter: 2017Q2

REPORT INFORMATION
  Report Type: Report from Study
  Country: KR (occurrence: KR)
  Receive Date: 20170406
  Receipt Date: 20170601
  Transmission Date: 20170830
  Serious: Yes (Death, Other)
  Sender: FDA-Public Use
  Company Number: KR-OTSUKA-2017_007693

PATIENT
  Age: 75 Year
  Sex: Female

DRUGS (9)
  1. DULCOLAX NOS [Concomitant]
     Active Substance: BISACODYL OR DOCUSATE SODIUM
     Indication: PRE-EXISTING DISEASE
     Dosage: 2 TABS, QD
     Route: 050
     Dates: start: 20140731
  2. KCL [Concomitant]
     Active Substance: POTASSIUM CHLORIDE
     Indication: PRE-EXISTING DISEASE
     Dosage: 1AMPLE/DAY
     Route: 042
     Dates: end: 20140804
  3. MAGNESIUM SULFATE. [Concomitant]
     Active Substance: MAGNESIUM SULFATE
     Indication: PRE-EXISTING DISEASE
     Dosage: 1 AMPLE/DAY
     Route: 042
     Dates: end: 20140803
  4. CALCIUM GLUCONATE. [Concomitant]
     Active Substance: CALCIUM GLUCONATE
     Indication: PRE-EXISTING DISEASE
     Dosage: 1AMPLE/DAY
     Route: 042
     Dates: end: 20140803
  5. GASTER [Concomitant]
     Active Substance: FAMOTIDINE
     Indication: PRE-EXISTING DISEASE
     Dosage: 40 MG, SINGLE
     Route: 042
     Dates: end: 20140807
  6. OLMETEC [Concomitant]
     Active Substance: OLMESARTAN MEDOXOMIL
     Indication: PRE-EXISTING DISEASE
     Dosage: 1 TAB, QD
     Route: 048
     Dates: end: 20140804
  7. NEXIUM [Concomitant]
     Active Substance: ESOMEPRAZOLE MAGNESIUM
     Indication: PRE-EXISTING DISEASE
     Dosage: 200 MG, SINGLE
     Route: 042
     Dates: end: 20140807
  8. TOLVAPTAN [Suspect]
     Active Substance: TOLVAPTAN
     Indication: HYPONATRAEMIA
     Dosage: 15 MG, QD
     Route: 048
     Dates: start: 20140728, end: 20140802
  9. LANSTON [Concomitant]
     Active Substance: LANSOPRAZOLE
     Indication: PRE-EXISTING DISEASE
     Dosage: 1 TAB, QD
     Route: 048
     Dates: end: 20140805

REACTIONS (2)
  - Hypernatraemia [Recovered/Resolved]
  - Delirium [Fatal]

NARRATIVE: CASE EVENT DATE: 20140731
